FAERS Safety Report 4461277-X (Version None)
Quarter: 2004Q3

REPORT INFORMATION
  Report Type: 
  Country: None (occurrence: None)
  Receive Date: 20040928
  Receipt Date: 20030130
  Transmission Date: 20050211
  Serious: Yes (Hospitalization, Other)
  Sender: FDA-Public Use
  Company Number: US-MERCK-0302USA00123

PATIENT
  Age: 64 Year
  Sex: Female
  Weight: 73 kg

DRUGS (6)
  1. COZAAR [Concomitant]
     Route: 048
     Dates: start: 20000801, end: 20001001
  2. METHOTREXATE [Concomitant]
     Route: 065
  3. PREDNISONE [Concomitant]
     Route: 065
  4. VIOXX [Suspect]
     Indication: RHEUMATOID ARTHRITIS
     Route: 048
     Dates: start: 19990701, end: 20010701
  5. VIOXX [Suspect]
     Indication: OSTEOARTHRITIS
     Route: 048
     Dates: start: 19990701, end: 20010701
  6. DIOVAN [Concomitant]
     Route: 065
     Dates: end: 20030101

REACTIONS (98)
  - ABASIA [None]
  - ABDOMINAL DISCOMFORT [None]
  - ABDOMINAL PAIN [None]
  - ANAEMIA OF CHRONIC DISEASE [None]
  - ANGINA PECTORIS [None]
  - ANXIETY [None]
  - ARTHRALGIA [None]
  - ASTHENIA [None]
  - ASTHMA [None]
  - ATHEROSCLEROSIS [None]
  - BACK PAIN [None]
  - BLOOD PRESSURE INADEQUATELY CONTROLLED [None]
  - BREAST DISORDER [None]
  - BREATH SOUNDS DECREASED [None]
  - BRONCHITIS [None]
  - BURSITIS [None]
  - CALCINOSIS [None]
  - CARDIAC FAILURE CONGESTIVE [None]
  - CARDIOMEGALY [None]
  - CHEST DISCOMFORT [None]
  - CHEST PAIN [None]
  - CHEST X-RAY ABNORMAL [None]
  - CHOLECYSTITIS [None]
  - COMPUTERISED TOMOGRAM [None]
  - CONDITION AGGRAVATED [None]
  - CONGESTIVE CARDIOMYOPATHY [None]
  - CONSTIPATION [None]
  - COUGH [None]
  - CREPITATIONS [None]
  - CYSTITIS [None]
  - DIABETES MELLITUS INADEQUATE CONTROL [None]
  - DIABETIC NEUROPATHY [None]
  - DIABETIC RETINOPATHY [None]
  - DIARRHOEA [None]
  - DIFFICULTY IN WALKING [None]
  - DRUG HYPERSENSITIVITY [None]
  - DRUG INEFFECTIVE [None]
  - DUODENITIS [None]
  - DYSLIPIDAEMIA [None]
  - DYSPEPSIA [None]
  - DYSPNOEA [None]
  - DYSPNOEA PAROXYSMAL NOCTURNAL [None]
  - DYSSTASIA [None]
  - ECCHYMOSIS [None]
  - EJECTION FRACTION DECREASED [None]
  - EMBOLIC CEREBRAL INFARCTION [None]
  - EMOTIONAL DISTRESS [None]
  - FATIGUE [None]
  - FEELING ABNORMAL [None]
  - FLATULENCE [None]
  - FLUID RETENTION [None]
  - GASTRITIS [None]
  - GLYCOSYLATED HAEMOGLOBIN INCREASED [None]
  - GOUT [None]
  - HAEMATOMA [None]
  - HEADACHE [None]
  - HEMIANOPIA HOMONYMOUS [None]
  - HYPERGLYCAEMIA [None]
  - HYPERTENSIVE CRISIS [None]
  - HYPERTROPHIC CARDIOMYOPATHY [None]
  - INJURY [None]
  - INSOMNIA [None]
  - IRON DEFICIENCY ANAEMIA [None]
  - IRRITABLE BOWEL SYNDROME [None]
  - JOINT EFFUSION [None]
  - JOINT SWELLING [None]
  - LACTOSE INTOLERANCE [None]
  - MACULAR DEGENERATION [None]
  - MALAISE [None]
  - MITRAL VALVE CALCIFICATION [None]
  - MITRAL VALVE INCOMPETENCE [None]
  - MYALGIA [None]
  - MYOCARDIAL INFARCTION [None]
  - OEDEMA PERIPHERAL [None]
  - ORTHOPNOEA [None]
  - PAIN [None]
  - PAIN IN EXTREMITY [None]
  - PHARYNGOLARYNGEAL PAIN [None]
  - PITTING OEDEMA [None]
  - POLYURIA [None]
  - PULMONARY OEDEMA [None]
  - RENAL FAILURE CHRONIC [None]
  - RESTLESS LEGS SYNDROME [None]
  - RHEUMATOID ARTHRITIS [None]
  - SALIVARY GLAND DISORDER [None]
  - SKIN CANCER [None]
  - SKIN DISORDER [None]
  - SKIN NODULE [None]
  - SPINAL OSTEOARTHRITIS [None]
  - SWELLING [None]
  - SYNOVITIS [None]
  - TREATMENT NONCOMPLIANCE [None]
  - URINARY INCONTINENCE [None]
  - URINARY TRACT INFECTION [None]
  - VENTRICULAR DYSFUNCTION [None]
  - VISION BLURRED [None]
  - WHEEZING [None]
  - WHITE BLOOD CELL COUNT INCREASED [None]
